FAERS Safety Report 13489030 (Version 2)
Quarter: 2020Q3

REPORT INFORMATION
  Report Type: Spontaneous
  Country: IT (occurrence: IT)
  Receive Date: 20170427
  Receipt Date: 20200922
  Transmission Date: 20201102
  Serious: Yes (Other)
  Sender: FDA-Public Use
  Company Number: IT-AUROBINDO-AUR-APL-2017-33130

PATIENT
  Age: 58 Year
  Sex: Female

DRUGS (6)
  1. RIVOTRIL [Concomitant]
     Active Substance: CLONAZEPAM
     Indication: PRODUCT USED FOR UNKNOWN INDICATION
     Dosage: 6 MG, UNK
     Route: 048
  2. LORAZEPAM. [Concomitant]
     Active Substance: LORAZEPAM
     Indication: PRODUCT USED FOR UNKNOWN INDICATION
     Dosage: 1 MG, UNK
     Route: 048
  3. QUETIAPINE. [Suspect]
     Active Substance: QUETIAPINE
     Indication: ABNORMAL BEHAVIOUR
     Dosage: 400 MG, DAILY
     Route: 048
     Dates: start: 20170412
  4. OLANZAPINE. [Suspect]
     Active Substance: OLANZAPINE
     Dosage: 2.5 MILLIGRAM, DAILY
     Route: 048
  5. OLANZAPINE. [Suspect]
     Active Substance: OLANZAPINE
     Indication: ABNORMAL BEHAVIOUR
     Dosage: 7.5 MG, DAILY
     Route: 048
     Dates: start: 20170412
  6. DEPAKIN [Concomitant]
     Active Substance: VALPROATE SODIUM
     Indication: PRODUCT USED FOR UNKNOWN INDICATION
     Dosage: 900 MG, UNK
     Route: 048

REACTIONS (1)
  - Pleurothotonus [Recovering/Resolving]

NARRATIVE: CASE EVENT DATE: 20170417
